FAERS Safety Report 8389017-2 (Version None)
Quarter: 2012Q2

REPORT INFORMATION
  Report Type: 
  Country: None (occurrence: None)
  Receive Date: 20120528
  Receipt Date: 20120525
  Transmission Date: 20120825
  Serious: Yes (Other)
  Sender: FDA-Public Use
  Company Number: US-PFIZER INC-2012127104

PATIENT
  Sex: Female
  Weight: 65.8 kg

DRUGS (3)
  1. SERTRALINE HYDROCHLORIDE [Suspect]
     Indication: ANXIETY
     Dosage: UNK
     Route: 048
     Dates: start: 20120501
  2. ASPIRIN [Concomitant]
     Dosage: 81 MG, DAILY
  3. SERTRALINE HYDROCHLORIDE [Suspect]
     Indication: DEPRESSION

REACTIONS (1)
  - DEPRESSION [None]
